FAERS Safety Report 13369119 (Version 3)
Quarter: 2017Q4

REPORT INFORMATION
  Report Type: Spontaneous
  Country: JP (occurrence: JP)
  Receive Date: 20170324
  Receipt Date: 20171229
  Transmission Date: 20180320
  Serious: Yes (Hospitalization, Other)
  Sender: FDA-Public Use
  Company Number: JP-ROCHE-1911192

PATIENT
  Age: 66 Year
  Sex: Male

DRUGS (13)
  1. PREDNISOLONE. [Concomitant]
     Active Substance: PREDNISOLONE
     Dosage: 4 MG, UNK
     Route: 048
     Dates: start: 20170106
  2. FEBURIC [Concomitant]
     Active Substance: FEBUXOSTAT
     Indication: HYPERURICAEMIA
     Dosage: 10 MG, QD
     Route: 048
  3. CARBOCISTEINE [Concomitant]
     Active Substance: CARBOCYSTEINE
     Indication: ASTHMA
     Dosage: 500 MG, TID
     Route: 048
  4. ERYTHROMYCIN. [Concomitant]
     Active Substance: ERYTHROMYCIN
     Indication: ASTHMA
     Dosage: 200 MG, BID
     Route: 048
  5. PULMICORT TURBUHALER [Concomitant]
     Active Substance: BUDESONIDE
     Indication: ASTHMA
     Dosage: 400 UG, BID
     Route: 055
     Dates: start: 20150721
  6. PREDNISOLONE. [Concomitant]
     Active Substance: PREDNISOLONE
     Indication: ASTHMA
     Dosage: 5 MG, UNK
     Route: 048
  7. FOSAMAC [Concomitant]
     Active Substance: ALENDRONATE SODIUM
     Indication: OSTEOPOROSIS
     Dosage: 35 MG, QD
     Route: 048
     Dates: start: 20160119
  8. FLUTIFORM [Concomitant]
     Active Substance: FLUTICASONE PROPIONATE\FORMOTEROL FUMARATE
     Indication: ASTHMA
     Dosage: 2 INHALATIONS PER DOSE, TID
     Route: 055
     Dates: start: 20150501
  9. XOLAIR [Suspect]
     Active Substance: OMALIZUMAB
     Indication: ASTHMA
     Route: 058
     Dates: start: 20160621, end: 20170307
  10. PRANLUKAST [Concomitant]
     Active Substance: PRANLUKAST
     Indication: ASTHMA
     Dosage: 225 MG, BID
     Route: 048
  11. AMLODIPINE [Concomitant]
     Active Substance: AMLODIPINE BESYLATE
     Indication: HYPERTENSION
     Dosage: 5 MG, QD
     Route: 048
  12. MICARDIS [Concomitant]
     Active Substance: TELMISARTAN
     Indication: HYPERTENSION
     Dosage: 20 MG, QD
     Route: 048
  13. SPIRIVA [Concomitant]
     Active Substance: TIOTROPIUM BROMIDE MONOHYDRATE
     Indication: ASTHMA
     Dosage: 5 UG, QD
     Route: 055
     Dates: start: 20150202

REACTIONS (25)
  - Abdominal pain upper [Recovering/Resolving]
  - Haemoglobin decreased [Unknown]
  - Malaise [Recovering/Resolving]
  - Neutrophil percentage decreased [Recovered/Resolved]
  - Skin disorder [Unknown]
  - Alanine aminotransferase increased [Recovered/Resolved]
  - Eosinophilic granulomatosis with polyangiitis [Recovering/Resolving]
  - Deafness [Unknown]
  - Red blood cell count decreased [Unknown]
  - White blood cell count increased [Recovered/Resolved]
  - Hypoaesthesia [Unknown]
  - Platelet count increased [Recovered/Resolved]
  - Sputum retention [Unknown]
  - Blood alkaline phosphatase increased [Recovered/Resolved]
  - Blood creatinine increased [Recovered/Resolved]
  - Blood lactate dehydrogenase increased [Recovered/Resolved]
  - Monocyte percentage increased [Unknown]
  - Wheezing [Unknown]
  - Cerebral infarction [Recovering/Resolving]
  - Liver disorder [Unknown]
  - Aspartate aminotransferase increased [Recovered/Resolved]
  - Haematocrit decreased [Unknown]
  - Lymphocyte percentage decreased [Recovered/Resolved]
  - Monocyte percentage decreased [Unknown]
  - Erythema [Unknown]

NARRATIVE: CASE EVENT DATE: 201702
